FAERS Safety Report 17992149 (Version 1)
Quarter: 2020Q3

REPORT INFORMATION
  Report Type: Spontaneous
  Country: US (occurrence: US)
  Receive Date: 20200707
  Receipt Date: 20200707
  Transmission Date: 20201103
  Serious: Yes (Hospitalization, Disabling, Other)
  Sender: FDA-Public Use
  Company Number: US-NAPPMUNDI-USA-2020-0155784

PATIENT
  Sex: Male

DRUGS (4)
  1. OXYCONTIN [Suspect]
     Active Substance: OXYCODONE HYDROCHLORIDE
     Indication: PAIN
     Route: 048
  2. DILAUDID [Suspect]
     Active Substance: HYDROMORPHONE HYDROCHLORIDE
     Indication: PRODUCT USED FOR UNKNOWN INDICATION
     Route: 048
  3. MS CONTIN [Suspect]
     Active Substance: MORPHINE SULFATE
     Indication: PRODUCT USED FOR UNKNOWN INDICATION
     Route: 048
  4. HYDROCODONE BITARTRATE AND ACETAMINOPHEN [Suspect]
     Active Substance: ACETAMINOPHEN\HYDROCODONE BITARTRATE
     Indication: PRODUCT USED FOR UNKNOWN INDICATION
     Route: 048

REACTIONS (13)
  - Disability [Unknown]
  - Drug dependence [Unknown]
  - Hypogonadism [Unknown]
  - Asthenia [Unknown]
  - Blood testosterone decreased [Unknown]
  - Fear [Unknown]
  - Libido decreased [Unknown]
  - Withdrawal syndrome [Unknown]
  - Prostatectomy [Unknown]
  - Hospitalisation [Unknown]
  - Prostate cancer [Unknown]
  - Anxiety [Unknown]
  - Drug tolerance [Unknown]

NARRATIVE: CASE EVENT DATE: 2017
